FAERS Safety Report 21232960 (Version 1)
Quarter: 2022Q3

REPORT INFORMATION
  Report Type: Spontaneous
  Country: GB (occurrence: GB)
  Receive Date: 20220819
  Receipt Date: 20220819
  Transmission Date: 20221027
  Serious: Yes (Hospitalization)
  Sender: FDA-Public Use
  Company Number: None

PATIENT
  Age: 73 Year
  Sex: Male

DRUGS (22)
  1. HYDROCORTISONE [Suspect]
     Active Substance: HYDROCORTISONE
     Indication: Product used for unknown indication
     Dosage: 20 MG IN THE MORNING. 10 MG AROUND 4 PM TO DOUBLE IN TIMES OF STRESS/ INTERCURRENT ILLNESS
  2. ASPIRIN [Concomitant]
     Active Substance: ASPIRIN
     Indication: Product used for unknown indication
     Dosage: 75 MILLIGRAM DAILY; 75 MG, OD, STRENGTH : 75 MG, TAKE ONE TABLET ONCE DAILY 56 TABLET
  3. ATORVASTATIN [Concomitant]
     Active Substance: ATORVASTATIN
     Indication: Product used for unknown indication
     Dosage: 20 MILLIGRAM DAILY; 1 AT NIGHT, 2 X 28 TABLET , STRENGTH : 20 MG
  4. BISOPROLOL [Concomitant]
     Active Substance: BISOPROLOL
     Indication: Product used for unknown indication
  5. CAFFEINE [Concomitant]
     Active Substance: CAFFEINE
     Indication: Product used for unknown indication
     Dosage: CAFFEINE-CONTAINING DRINKS OR OTHER MEDICATION 56 TABLET
  6. CHLORQUINALDOL [Concomitant]
     Active Substance: CHLORQUINALDOL
     Indication: Product used for unknown indication
  7. DIBUCAINE [Concomitant]
     Active Substance: DIBUCAINE
     Indication: Product used for unknown indication
  8. CLINDAMYCIN [Concomitant]
     Active Substance: CLINDAMYCIN
     Indication: Product used for unknown indication
  9. COAL TAR [Concomitant]
     Active Substance: COAL TAR
     Indication: Product used for unknown indication
  10. DIPYRIDAMOLE [Concomitant]
     Active Substance: DIPYRIDAMOLE
     Indication: Product used for unknown indication
  11. ECONAZOLE [Concomitant]
     Active Substance: ECONAZOLE
     Indication: Product used for unknown indication
  12. ICHTHAMMOL [Concomitant]
     Active Substance: ICHTHAMMOL
     Indication: Product used for unknown indication
  13. LEVOTHYROXINE [Concomitant]
     Active Substance: LEVOTHYROXINE
     Indication: Product used for unknown indication
     Dosage: 25 MICROGRAM DAILY; STRENGTH : 25 MICROGRAM, ONE TO BE TAKEN EACH MORNING AT LEAST 30 MINUTES BEFORE
  14. LEVOTHYROXINE [Concomitant]
     Active Substance: LEVOTHYROXINE
     Dosage: 50 MICROGRAM DAILY; STRENGTH , UNIT DOSE : 50 MICROGRAM, ONE TO BE TAKEN EACH MORNING BEFORE BREAKFA
  15. LIDOCAINE [Concomitant]
     Active Substance: LIDOCAINE
     Indication: Product used for unknown indication
  16. MENTHOL [Concomitant]
     Active Substance: MENTHOL
     Indication: Product used for unknown indication
  17. OXYTETRACYCLINE [Concomitant]
     Active Substance: OXYTETRACYCLINE
     Indication: Product used for unknown indication
  18. RAMIPRIL [Concomitant]
     Active Substance: RAMIPRIL
     Indication: Product used for unknown indication
     Dosage: 5 MILLIGRAM DAILY; STRENGTH, UNIT DOSE : 5 MG, ONE TO BE TAKEN EACH DAY 56 CAPSULE
  19. SULFUR [Concomitant]
     Active Substance: SULFUR
     Indication: Product used for unknown indication
  20. TESTOSTERONE [Concomitant]
     Active Substance: TESTOSTERONE
     Indication: Product used for unknown indication
     Dosage: 16.2MG/G, TESTOGEL 16.2MG/G (BESINS HEALTHCARE (UK) LTD) 3 PUMPS DAILY AS PER ENDOCRINE CLINIC 88 GR
  21. SALMOL [Concomitant]
     Indication: Product used for unknown indication
     Dosage: UNIT DOSE : 100 MCG, SALAMOL 100MICROGRAMS/DOSE INHALER CFC FREE (TEVA UK LTD) ONE OR TWO PUFFS TO B
     Route: 055
  22. NITROGLYCERIN [Concomitant]
     Active Substance: NITROGLYCERIN
     Indication: Chest pain
     Dosage: 1-2, UNIT DOSE: 400 MCG, GLYCERYL TRINITRATE 400MICROGRAMS/DOSE PUMP SUBLINGUAL SPRAY SPRAY 1-2 PUFF
     Route: 060

REACTIONS (1)
  - Infection [Recovered/Resolved]
